FAERS Safety Report 8591660-2 (Version None)
Quarter: 2012Q3

REPORT INFORMATION
  Report Type: 
  Country: None (occurrence: None)
  Receive Date: 20120814
  Receipt Date: 20120803
  Transmission Date: 20120928
  Serious: Yes (Hospitalization)
  Sender: FDA-Public Use
  Company Number: US-BAYER-2012-041938

PATIENT
  Age: 32 Year
  Sex: Female

DRUGS (1)
  1. YAZ [Suspect]
     Dosage: UNK
     Dates: start: 20070501, end: 20100501

REACTIONS (8)
  - INJURY [None]
  - PAIN [None]
  - PULMONARY EMBOLISM [None]
  - ANHEDONIA [None]
  - PULMONARY INFARCTION [None]
  - ANXIETY [None]
  - GENERAL PHYSICAL HEALTH DETERIORATION [None]
  - EMOTIONAL DISTRESS [None]
